FAERS Safety Report 11646405 (Version 2)
Quarter: 2016Q2

REPORT INFORMATION
  Report Type: Spontaneous
  Country: US (occurrence: US)
  Receive Date: 20151020
  Receipt Date: 20160429
  Transmission Date: 20160815
  Serious: No
  Sender: FDA-Public Use
  Company Number: US-ROCHE-1617766

PATIENT
  Sex: Male
  Weight: 106.69 kg

DRUGS (2)
  1. ESBRIET [Suspect]
     Active Substance: PIRFENIDONE
     Indication: IDIOPATHIC PULMONARY FIBROSIS
     Dosage: 2 CAPSULES (534 MG)
     Route: 048
     Dates: start: 20150427
  2. ESBRIET [Suspect]
     Active Substance: PIRFENIDONE
     Dosage: 3 CAPSULES (534 MG)
     Route: 048

REACTIONS (2)
  - Weight decreased [Unknown]
  - Frequent bowel movements [Unknown]
